FAERS Safety Report 6135112-8 (Version None)
Quarter: 2009Q1

REPORT INFORMATION
  Report Type: 
  Country: None (occurrence: None)
  Receive Date: 20090325
  Receipt Date: 20090308
  Transmission Date: 20090719
  Serious: Yes (Other)
  Sender: FDA-Public Use
  Company Number: 2007S1005442

PATIENT
  Age: 73 Year
  Sex: Female
  Weight: 61.2356 kg

DRUGS (11)
  1. PHOSPHOSODA FLAVOR NOT SPECIFIED [Suspect]
     Indication: COLONOSCOPY
     Dosage: 90 ML; TOTAL; PO
     Route: 048
     Dates: start: 20061106, end: 20061106
  2. NORVASC [Concomitant]
  3. HYZAAR /01284801/ [Concomitant]
  4. NORTRIPTYLINE HCL [Concomitant]
  5. MULTI-VIT [Concomitant]
  6. CALCIUM [Concomitant]
  7. GLUCOSAMINE [Concomitant]
  8. ANACIN /00141001/ [Concomitant]
  9. BEE POLLEN [Concomitant]
  10. SYNTHROID [Concomitant]
  11. GINKO BILOBA [Concomitant]

REACTIONS (3)
  - DRUG TOXICITY [None]
  - HYPERPHOSPHATAEMIA [None]
  - RENAL FAILURE ACUTE [None]
